FAERS Safety Report 5296606-0 (Version None)
Quarter: 2007Q2

REPORT INFORMATION
  Report Type: 
  Country: None (occurrence: None)
  Receive Date: 20070413
  Receipt Date: 20070402
  Transmission Date: 20071010
  Serious: Yes (Death)
  Sender: FDA-Public Use
  Company Number: KR-PFIZER INC-2006144108

PATIENT
  Sex: Male
  Weight: 1.2 kg

DRUGS (2)
  1. ZYVOX [Suspect]
     Indication: ENTEROCOCCAL INFECTION
     Route: 042
     Dates: start: 20060806, end: 20060812
  2. TETRACYCLINE [Concomitant]
     Dosage: DAILY DOSE:25.5MG
     Route: 048
     Dates: start: 20060729, end: 20060802

REACTIONS (2)
  - PNEUMONIA [None]
  - RESPIRATORY FAILURE [None]
